FAERS Safety Report 6569205-8 (Version None)
Quarter: 2010Q1

REPORT INFORMATION
  Report Type: 
  Country: None (occurrence: None)
  Receive Date: 20100201
  Receipt Date: 20100201
  Transmission Date: 20100710
  Serious: No
  Sender: FDA-Public Use
  Company Number: None

PATIENT
  Age: 31 Year
  Sex: Female
  Weight: 73.0291 kg

DRUGS (2)
  1. AMPHETAMINE AND DEXTROAMPHETAMINE SALTS [Suspect]
     Indication: ATTENTION DEFICIT/HYPERACTIVITY DISORDER
     Dosage: 1 TABLET 3 X PER DAY PO AS NEEDED
     Route: 048
     Dates: start: 20100108, end: 20100129
  2. ADDERALL 30 [Suspect]

REACTIONS (6)
  - DEPRESSION [None]
  - DERMATITIS [None]
  - EATING DISORDER [None]
  - PRODUCT SUBSTITUTION ISSUE [None]
  - RASH [None]
  - TINNITUS [None]
